FAERS Safety Report 8489528-5 (Version None)
Quarter: 2012Q3

REPORT INFORMATION
  Report Type: 
  Country: None (occurrence: None)
  Receive Date: 20120705
  Receipt Date: 20120626
  Transmission Date: 20120928
  Serious: Yes (Other)
  Sender: FDA-Public Use
  Company Number: JP-JNJFOC-20120410300

PATIENT
  Sex: Female
  Weight: 65 kg

DRUGS (10)
  1. TACROLIMUS [Suspect]
     Indication: RHEUMATOID ARTHRITIS
     Dates: start: 20090609
  2. METHOTREXATE [Concomitant]
  3. WARFARIN SODIUM [Concomitant]
     Route: 048
  4. ISOSORBIDE DINITRATE [Concomitant]
     Route: 061
  5. CLINDAMYCIN [Concomitant]
     Indication: ACUTE SINUSITIS
  6. GOLIMUMAB [Suspect]
     Indication: RHEUMATOID ARTHRITIS
     Route: 058
     Dates: start: 20120215
  7. GOLIMUMAB [Suspect]
     Route: 058
     Dates: start: 20120118
  8. DIGOXIN [Concomitant]
     Route: 065
  9. METHOTREXATE [Concomitant]
     Dates: start: 20120601
  10. SULFASALAZINE [Concomitant]
     Indication: RHEUMATOID ARTHRITIS
     Dates: start: 20001115

REACTIONS (2)
  - ACUTE SINUSITIS [None]
  - N-TERMINAL PROHORMONE BRAIN NATRIURETIC PEPTIDE INCREASED [None]
